FAERS Safety Report 7723320-1 (Version None)
Quarter: 2011Q3

REPORT INFORMATION
  Report Type: 
  Country: None (occurrence: None)
  Receive Date: 20110901
  Receipt Date: 20110901
  Transmission Date: 20111222
  Serious: Yes (Other)
  Sender: FDA-Public Use
  Company Number: None

PATIENT
  Age: 17 Year
  Sex: Female
  Weight: 46.266 kg

DRUGS (1)
  1. MEDROXYPROGESTERONE ACETATE [Suspect]
     Indication: CONTRACEPTION
     Dosage: ONE ML OR 150MG
     Route: 030

REACTIONS (5)
  - SYNCOPE [None]
  - CONVULSION [None]
  - DIZZINESS [None]
  - CIRCULATORY COLLAPSE [None]
  - FALL [None]
